FAERS Safety Report 6872345-7 (Version None)
Quarter: 2010Q3

REPORT INFORMATION
  Report Type: 
  Country: None (occurrence: None)
  Receive Date: 20100723
  Receipt Date: 20080920
  Transmission Date: 20110219
  Serious: No
  Sender: FDA-Public Use
  Company Number: US-PFIZER INC-2008079599

PATIENT
  Sex: Female
  Weight: 58.51 kg

DRUGS (2)
  1. CHANTIX [Suspect]
     Indication: SMOKING CESSATION THERAPY
     Route: 048
     Dates: start: 20080224, end: 20080501
  2. CARDIAC THERAPY [Concomitant]
     Indication: CARDIAC DISORDER

REACTIONS (2)
  - ABNORMAL DREAMS [None]
  - NERVOUSNESS [None]
